FAERS Safety Report 8387753-5 (Version None)
Quarter: 2012Q2

REPORT INFORMATION
  Report Type: 
  Country: None (occurrence: None)
  Receive Date: 20120525
  Receipt Date: 20120518
  Transmission Date: 20120825
  Serious: Yes (Death, Life-Threatening, Hospitalization, Other)
  Sender: FDA-Public Use
  Company Number: US-GLAXOSMITHKLINE-A0964655A

PATIENT
  Age: 40 Year
  Sex: Female
  Weight: 71.8 kg

DRUGS (3)
  1. POTASSIUM CHLORIDE [Concomitant]
  2. FLOLAN [Suspect]
     Indication: PRODUCT USED FOR UNKNOWN INDICATION
     Dosage: 42NGKM SEE DOSAGE TEXT
     Route: 042
     Dates: start: 19991101
  3. LASIX [Concomitant]

REACTIONS (13)
  - HEART RATE INCREASED [None]
  - PNEUMOCOCCAL INFECTION [None]
  - CLOSTRIDIAL INFECTION [None]
  - DIARRHOEA [None]
  - CARDIAC FAILURE ACUTE [None]
  - PULSELESS ELECTRICAL ACTIVITY [None]
  - BLOOD PRESSURE DECREASED [None]
  - SEPSIS [None]
  - RESPIRATORY DISORDER [None]
  - RESPIRATORY FAILURE [None]
  - PYREXIA [None]
  - MALAISE [None]
  - PULSE ABSENT [None]
